FAERS Safety Report 4494371-8 (Version None)
Quarter: 2004Q4

REPORT INFORMATION
  Report Type: 
  Country: None (occurrence: None)
  Receive Date: 20041104
  Receipt Date: 20041104
  Transmission Date: 20050328
  Serious: Yes (Disabling, Other)
  Sender: FDA-Public Use
  Company Number: None

PATIENT
  Age: 14 Year
  Sex: Male
  Weight: 52.1637 kg

DRUGS (1)
  1. LARIAM [Suspect]
     Indication: MALARIA PROPHYLAXIS
     Dosage: 250 MG PO EVERY WEEK
     Route: 048
     Dates: start: 20040806, end: 20040910

REACTIONS (10)
  - AMNESIA [None]
  - ANTISOCIAL BEHAVIOUR [None]
  - ANXIETY [None]
  - APHASIA [None]
  - CATATONIA [None]
  - DRUG TOXICITY [None]
  - PANIC ATTACK [None]
  - PSYCHOTIC DISORDER [None]
  - PYREXIA [None]
  - THINKING ABNORMAL [None]
